FAERS Safety Report 9498409 (Version 1)
Quarter: 2013Q3

REPORT INFORMATION
  Report Type: Report from Study
  Country: FR (occurrence: FR)
  Receive Date: 20130904
  Receipt Date: 20130904
  Transmission Date: 20140515
  Serious: Yes (Death, Hospitalization)
  Sender: FDA-Public Use
  Company Number: FR-GLAXOSMITHKLINE-A1039568A

PATIENT
  Age: 77 Year
  Sex: Female

DRUGS (5)
  1. ARIXTRA [Suspect]
     Indication: PULMONARY EMBOLISM
     Dosage: 7.5MG PER DAY
     Route: 058
     Dates: start: 201211
  2. SUTENT [Suspect]
     Indication: METASTATIC RENAL CELL CARCINOMA
     Dosage: 37.5MG PER DAY
     Route: 048
     Dates: start: 20120830
  3. BLINDED TRIAL MEDICATION [Suspect]
     Indication: RENAL CELL CARCINOMA
     Dates: start: 20100107, end: 20100901
  4. LODOZ [Concomitant]
     Indication: HYPERTENSION
     Dates: start: 201211
  5. LEVOTHYROX [Concomitant]
     Indication: HYPOTHYROIDISM
     Dosage: 50MCG PER DAY
     Dates: start: 20121024

REACTIONS (3)
  - Subdural haematoma [Fatal]
  - Brain oedema [Fatal]
  - Intraventricular haemorrhage [Fatal]
